FAERS Safety Report 6940217-5 (Version None)
Quarter: 2010Q3

REPORT INFORMATION
  Report Type: 
  Country: None (occurrence: None)
  Receive Date: 20100825
  Receipt Date: 20100817
  Transmission Date: 20110219
  Serious: Yes (Other)
  Sender: FDA-Public Use
  Company Number: US-JNJFOC-20100806999

PATIENT

DRUGS (7)
  1. DOXORUBICIN HYDROCHLORIDE [Suspect]
     Indication: LYMPHOMA
     Dosage: DAY 1
     Route: 042
  2. LENALIDOMIDE [Suspect]
     Indication: LYMPHOMA
     Dosage: DAYS 1-10
     Route: 065
  3. RITUXIMAB [Suspect]
     Indication: LYMPHOMA
     Dosage: DAY 1
     Route: 065
  4. CYCLOPHOSPHAMIDE [Suspect]
     Indication: LYMPHOMA
     Dosage: DAY 1
     Route: 065
  5. VINCRISTINE [Suspect]
     Indication: LYMPHOMA
     Dosage: DAY 1
     Route: 065
  6. PREDNISONE [Suspect]
     Indication: LYMPHOMA
     Dosage: DAYS 1-5
     Route: 065
  7. PEGFILGRASTIM [Suspect]
     Indication: LYMPHOMA
     Dosage: DAY 2
     Route: 065

REACTIONS (1)
  - NEUROPATHY PERIPHERAL [None]
